FAERS Safety Report 11242180 (Version 2)
Quarter: 2015Q3

REPORT INFORMATION
  Report Type: Spontaneous
  Country: US (occurrence: US)
  Receive Date: 20150707
  Receipt Date: 20150708
  Transmission Date: 20151125
  Serious: Yes (Hospitalization)
  Sender: FDA-Public Use
  Company Number: US-JNJFOC-20150622999

PATIENT
  Age: 63 Year
  Sex: Female
  Weight: 59.42 kg

DRUGS (2)
  1. IMODIUM A-D [Suspect]
     Active Substance: LOPERAMIDE HYDROCHLORIDE
     Route: 048
  2. IMODIUM A-D [Suspect]
     Active Substance: LOPERAMIDE HYDROCHLORIDE
     Indication: DIARRHOEA
     Dosage: 6 TSP
     Route: 048
     Dates: start: 20150621, end: 20150621

REACTIONS (5)
  - Intestinal perforation [Recovering/Resolving]
  - Infection [Unknown]
  - Diverticulitis [Recovering/Resolving]
  - Blood urine present [Recovering/Resolving]
  - Intestinal obstruction [Recovering/Resolving]

NARRATIVE: CASE EVENT DATE: 20150622
